FAERS Safety Report 6895718-5 (Version None)
Quarter: 2010Q3

REPORT INFORMATION
  Report Type: 
  Country: None (occurrence: None)
  Receive Date: 20100730
  Receipt Date: 20100730
  Transmission Date: 20110219
  Serious: No
  Sender: FDA-Public Use
  Company Number: None

PATIENT
  Age: 54 Year
  Sex: Female
  Weight: 49.4421 kg

DRUGS (1)
  1. ALDARA [Suspect]
     Indication: PRECANCEROUS SKIN LESION
     Dosage: THIN LAYER 3 TIMES A WEEK TOP
     Route: 061
     Dates: start: 20090831, end: 20090930

REACTIONS (3)
  - DIZZINESS [None]
  - PNEUMONIA [None]
  - SYSTEMIC LUPUS ERYTHEMATOSUS [None]
